FAERS Safety Report 8102178-5 (Version None)
Quarter: 2012Q1

REPORT INFORMATION
  Report Type: 
  Country: None (occurrence: None)
  Receive Date: 20120201
  Receipt Date: 20120123
  Transmission Date: 20120608
  Serious: Yes (Hospitalization)
  Sender: FDA-Public Use
  Company Number: US-BIOGENIDEC-2009BI041723

PATIENT
  Sex: Female

DRUGS (2)
  1. AVONEX [Suspect]
     Indication: MULTIPLE SCLEROSIS
     Route: 030
     Dates: start: 20000118
  2. PLAVIX [Concomitant]

REACTIONS (7)
  - SLEEP APNOEA SYNDROME [None]
  - CARDIAC DISORDER [None]
  - DYSPHAGIA [None]
  - DIZZINESS [None]
  - HIATUS HERNIA [None]
  - CORONARY ARTERIAL STENT INSERTION [None]
  - BALANCE DISORDER [None]
